FAERS Safety Report 15146334 (Version 1)
Quarter: 2018Q3

REPORT INFORMATION
  Report Type: Spontaneous
  Country: US (occurrence: US)
  Receive Date: 20180715
  Receipt Date: 20180715
  Transmission Date: 20181010
  Serious: No
  Sender: FDA-Public Use
  Company Number: US-JNJFOC-20180624230

PATIENT
  Sex: Male
  Weight: 68.04 kg

DRUGS (6)
  1. CHILDRENS BENADRYL ALLERGY [Suspect]
     Active Substance: DIPHENHYDRAMINE HYDROCHLORIDE
     Indication: CYCLIC VOMITING SYNDROME
     Dosage: 2 TO 3X DAILY USING THE DOSING CUP PROVIDED
     Route: 065
  2. CHILDRENS TYLENOL [Suspect]
     Active Substance: ACETAMINOPHEN
     Indication: ABDOMINAL PAIN UPPER
     Dosage: 3 TIMES PER WEEK IF NEEDED (BY THE APPLICATOR PROVIDED)
     Route: 065
  3. CHILDRENS TYLENOL [Suspect]
     Active Substance: ACETAMINOPHEN
     Indication: NAUSEA
     Dosage: 3 TIMES PER WEEK IF NEEDED (BY THE APPLICATOR PROVIDED)
     Route: 065
  4. CHILDRENS BENADRYL ALLERGY [Suspect]
     Active Substance: DIPHENHYDRAMINE HYDROCHLORIDE
     Indication: MULTIPLE ALLERGIES
     Dosage: 2 TO 3X DAILY USING THE DOSING CUP PROVIDED
     Route: 065
  5. CHILDRENS TYLENOL [Suspect]
     Active Substance: ACETAMINOPHEN
     Indication: HEADACHE
     Dosage: 3 TIMES PER WEEK IF NEEDED (BY THE APPLICATOR PROVIDED)
     Route: 065
  6. CHILDRENS TYLENOL [Suspect]
     Active Substance: ACETAMINOPHEN
     Indication: CYCLIC VOMITING SYNDROME
     Dosage: 3 TIMES PER WEEK IF NEEDED (BY THE APPLICATOR PROVIDED)
     Route: 065

REACTIONS (4)
  - Therapeutic response unexpected [Unknown]
  - Product use in unapproved indication [Unknown]
  - Expired product administered [Unknown]
  - Off label use [Unknown]
